FAERS Safety Report 18036216 (Version 1)
Quarter: 2020Q3

REPORT INFORMATION
  Report Type: Spontaneous
  Country: CA (occurrence: CA)
  Receive Date: 20200717
  Receipt Date: 20200717
  Transmission Date: 20201103
  Serious: Yes (Other)
  Sender: FDA-Public Use
  Company Number: CA-B.I. PHARMACEUTICALS,INC./RIDGEFIELD-2020-BI-035898

PATIENT
  Age: 15 Year
  Sex: Male
  Weight: 127 kg

DRUGS (9)
  1. LAMOTRIGINE. [Suspect]
     Active Substance: LAMOTRIGINE
     Indication: BEHAVIOUR DISORDER
     Route: 065
  2. OLANZAPINE. [Suspect]
     Active Substance: OLANZAPINE
     Indication: INTELLECTUAL DISABILITY
     Route: 065
  3. CATAPRES [Suspect]
     Active Substance: CLONIDINE HYDROCHLORIDE
     Indication: INTELLECTUAL DISABILITY
     Route: 065
  4. QUETIAPINE. [Suspect]
     Active Substance: QUETIAPINE
     Indication: INTELLECTUAL DISABILITY
     Route: 065
  5. SERTRALINE [Suspect]
     Active Substance: SERTRALINE HYDROCHLORIDE
     Indication: INTELLECTUAL DISABILITY
     Route: 065
  6. SERTRALINE [Suspect]
     Active Substance: SERTRALINE HYDROCHLORIDE
     Indication: AUTISM SPECTRUM DISORDER
     Route: 065
  7. OLANZAPINE. [Suspect]
     Active Substance: OLANZAPINE
     Route: 065
  8. CATAPRES [Suspect]
     Active Substance: CLONIDINE HYDROCHLORIDE
     Indication: AUTISM SPECTRUM DISORDER
     Route: 065
  9. QUETIAPINE. [Suspect]
     Active Substance: QUETIAPINE
     Indication: AUTISM SPECTRUM DISORDER
     Route: 065

REACTIONS (2)
  - Obesity [Recovered/Resolved]
  - Blood prolactin increased [Recovered/Resolved]
